FAERS Safety Report 25458104 (Version 2)
Quarter: 2025Q2

REPORT INFORMATION
  Report Type: Spontaneous
  Country: US (occurrence: None)
  Receive Date: 20250620
  Receipt Date: 20250630
  Transmission Date: 20250716
  Serious: Yes (Hospitalization)
  Sender: MDD OPERATIONS
  Company Number: US-MDD US Operations-MDD202506-002042

PATIENT
  Age: 64 Year
  Sex: Male

DRUGS (1)
  1. APOKYN [Suspect]
     Active Substance: APOMORPHINE HYDROCHLORIDE
     Indication: Parkinson^s disease
     Route: 058
     Dates: start: 2025

REACTIONS (2)
  - Nasal injury [Recovered/Resolved]
  - Fall [Recovered/Resolved]

NARRATIVE: CASE EVENT DATE: 20250101
